FAERS Safety Report 13741668 (Version 1)
Quarter: 2017Q3

REPORT INFORMATION
  Report Type: Spontaneous
  Country: US (occurrence: US)
  Receive Date: 20170711
  Receipt Date: 20170711
  Transmission Date: 20171127
  Serious: No
  Sender: FDA-Public Use
  Company Number: US-PFIZER INC-2017297084

PATIENT
  Age: 45 Year
  Sex: Male

DRUGS (1)
  1. XELJANZ XR [Suspect]
     Active Substance: TOFACITINIB CITRATE
     Dosage: 11 MG, UNK

REACTIONS (9)
  - Red cell distribution width increased [Unknown]
  - Carbon dioxide decreased [Unknown]
  - Red blood cell sedimentation rate increased [Unknown]
  - White blood cell count increased [Unknown]
  - Haemoglobin decreased [Unknown]
  - Haematocrit decreased [Unknown]
  - Musculoskeletal stiffness [Recovering/Resolving]
  - Anion gap increased [Unknown]
  - Mean platelet volume decreased [Unknown]
